FAERS Safety Report 18620980 (Version 1)
Quarter: 2020Q4

REPORT INFORMATION
  Report Type: Spontaneous
  Country: US (occurrence: US)
  Receive Date: 20201215
  Receipt Date: 20201215
  Transmission Date: 20210114
  Serious: No
  Sender: FDA-Public Use
  Company Number: US-BAYER-2020-272704

PATIENT
  Sex: Female

DRUGS (2)
  1. MIRALAX [Suspect]
     Active Substance: POLYETHYLENE GLYCOL 3350
     Indication: GASTROINTESTINAL DISORDER
     Dosage: UNK
     Route: 048
     Dates: start: 202012
  2. BAYER LOW DOSE [Concomitant]
     Active Substance: ASPIRIN
     Route: 048

REACTIONS (3)
  - Rebound effect [Unknown]
  - Product use issue [Unknown]
  - Constipation [Unknown]
